FAERS Safety Report 7439417-X (Version None)
Quarter: 2011Q2

REPORT INFORMATION
  Report Type: 
  Country: None (occurrence: None)
  Receive Date: 20110427
  Receipt Date: 20110419
  Transmission Date: 20111010
  Serious: Yes (Other)
  Sender: FDA-Public Use
  Company Number: US-ASTELLAS-2011US001654

PATIENT
  Sex: Male

DRUGS (2)
  1. PROGRAF [Suspect]
     Indication: HEART TRANSPLANT
     Dosage: 2 MG, BID
     Route: 048
  2. PROGRAF [Suspect]
     Indication: RENAL TRANSPLANT

REACTIONS (1)
  - PHARYNGEAL DISORDER [None]
